FAERS Safety Report 7040094-0 (Version None)
Quarter: 2010Q4

REPORT INFORMATION
  Report Type: 
  Country: None (occurrence: None)
  Receive Date: 20101012
  Receipt Date: 20100929
  Transmission Date: 20110411
  Serious: Yes (Other)
  Sender: FDA-Public Use
  Company Number: PHHY2010US65274

PATIENT
  Sex: Female

DRUGS (1)
  1. TASIGNA [Suspect]
     Indication: ACUTE LYMPHOCYTIC LEUKAEMIA
     Dosage: 150 MG, BID
     Route: 048
     Dates: start: 20100915

REACTIONS (4)
  - BENIGN RENAL NEOPLASM [None]
  - BLOOD PRESSURE SYSTOLIC INCREASED [None]
  - GROIN PAIN [None]
  - URINARY RETENTION [None]
